FAERS Safety Report 24670540 (Version 2)
Quarter: 2024Q4

REPORT INFORMATION
  Report Type: Spontaneous
  Country: US (occurrence: US)
  Receive Date: 20241127
  Receipt Date: 20241206
  Transmission Date: 20250114
  Serious: Yes (Other)
  Sender: PFIZER
  Company Number: US-PFIZER INC-PV202400151293

PATIENT
  Sex: Male

DRUGS (3)
  1. LORLATINIB [Suspect]
     Active Substance: LORLATINIB
     Indication: Lung neoplasm malignant
     Dosage: UNK
  2. LORLATINIB [Suspect]
     Active Substance: LORLATINIB
     Indication: Diffuse large B-cell lymphoma
  3. LORLATINIB [Suspect]
     Active Substance: LORLATINIB
     Indication: Non-small cell lung cancer metastatic

REACTIONS (4)
  - Pneumonitis [Recovering/Resolving]
  - Blood cholesterol increased [Recovering/Resolving]
  - Weight increased [Recovering/Resolving]
  - Arthropathy [Recovering/Resolving]
